FAERS Safety Report 9091042 (Version 1)
Quarter: 2013Q1

REPORT INFORMATION
  Report Type: Spontaneous
  Country: US (occurrence: US)
  Receive Date: 20130201
  Receipt Date: 20130201
  Transmission Date: 20140127
  Serious: No
  Sender: FDA-Public Use
  Company Number: US-ABBOTT-12P-163-1020202-00

PATIENT
  Sex: 0

DRUGS (1)
  1. HUMIRA [Suspect]
     Indication: PRODUCT USED FOR UNKNOWN INDICATION

REACTIONS (7)
  - Skin fissures [Unknown]
  - Drug ineffective [Unknown]
  - Skin haemorrhage [Unknown]
  - Pain [Unknown]
  - Arthropathy [Unknown]
  - Pruritus [Unknown]
  - Arthralgia [Unknown]
